FAERS Safety Report 11075350 (Version 2)
Quarter: 2015Q2

REPORT INFORMATION
  Report Type: Report from Study
  Country: US (occurrence: US)
  Receive Date: 20150429
  Receipt Date: 20150622
  Transmission Date: 20150821
  Serious: Yes (Death, Other)
  Sender: FDA-Public Use
  Company Number: US-SA-2015SA052596

PATIENT
  Age: 64 Year
  Sex: Male

DRUGS (1)
  1. AUBAGIO [Suspect]
     Active Substance: TERIFLUNOMIDE
     Indication: RELAPSING-REMITTING MULTIPLE SCLEROSIS
     Route: 048
     Dates: start: 20150317, end: 20150417

REACTIONS (3)
  - Deep vein thrombosis [Unknown]
  - Pancreatic carcinoma [Unknown]
  - Haemorrhagic stroke [Fatal]

NARRATIVE: CASE EVENT DATE: 201504
